FAERS Safety Report 10220793 (Version 2)
Quarter: 2014Q3

REPORT INFORMATION
  Report Type: Report from Study
  Country: JP (occurrence: JP)
  Receive Date: 20140606
  Receipt Date: 20140715
  Transmission Date: 20150326
  Serious: Yes (Death, Other)
  Sender: FDA-Public Use
  Company Number: JP-EISAI INC-E2020-14101-SOL-JP

PATIENT
  Age: 91 Year
  Sex: Female

DRUGS (6)
  1. LUPRAC [Concomitant]
     Active Substance: TORSEMIDE
  2. ARICEPT [Suspect]
     Active Substance: DONEPEZIL HYDROCHLORIDE
     Indication: DEMENTIA ALZHEIMER^S TYPE
     Dates: start: 20140123, end: 20140205
  3. ARICEPT [Suspect]
     Active Substance: DONEPEZIL HYDROCHLORIDE
     Dates: start: 20140206, end: 20140513
  4. TAKEPRON [Concomitant]
     Active Substance: LANSOPRAZOLE
  5. BIOFERMIN [Concomitant]
     Active Substance: BACILLUS SUBTILIS\LACTOBACILLUS ACIDOPHILUS\STREPTOCOCCUS FAECAIS
  6. BENIDIPINE HYDROCHLORIDE [Concomitant]
     Active Substance: BENIDIPINE HYDROCHLORIDE

REACTIONS (2)
  - Senile dementia [Fatal]
  - Decreased appetite [Unknown]

NARRATIVE: CASE EVENT DATE: 20140501
